FAERS Safety Report 17406002 (Version 1)
Quarter: 2020Q1

REPORT INFORMATION
  Report Type: Spontaneous
  Country: US (occurrence: US)
  Receive Date: 20200212
  Receipt Date: 20200212
  Transmission Date: 20200409
  Serious: No
  Sender: FDA-Public Use
  Company Number: US-ALLERGAN-1949835US

PATIENT
  Age: 42 Year
  Sex: Male

DRUGS (1)
  1. TAZORAC [Suspect]
     Active Substance: TAZAROTENE
     Indication: ACNE
     Dosage: 0.05 ONCE AT NIGHT, STARTED MONTHS AGO
     Route: 061

REACTIONS (1)
  - Skin depigmentation [Recovering/Resolving]
